FAERS Safety Report 25416120 (Version 2)
Quarter: 2025Q2

REPORT INFORMATION
  Report Type: Spontaneous
  Country: GB (occurrence: GB)
  Receive Date: 20250610
  Receipt Date: 20250612
  Transmission Date: 20250717
  Serious: Yes (Other)
  Sender: ROCHE
  Company Number: GB-ROCHE-10000303325

PATIENT
  Age: 43 Year
  Sex: Female

DRUGS (9)
  1. OCRELIZUMAB [Suspect]
     Active Substance: OCRELIZUMAB
     Indication: Multiple sclerosis
     Route: 065
  2. ANAKINRA [Concomitant]
     Active Substance: ANAKINRA
  3. METHYLPREDNISOLONE [Concomitant]
     Active Substance: METHYLPREDNISOLONE
  4. PREDNISOLONE [Concomitant]
     Active Substance: PREDNISOLONE
  5. FLUOXETINE [Concomitant]
     Active Substance: FLUOXETINE HYDROCHLORIDE
  6. CARBAMAZEPINE [Concomitant]
     Active Substance: CARBAMAZEPINE
     Route: 048
  7. PREGABALIN [Concomitant]
     Active Substance: PREGABALIN
  8. FOLIC ACID [Concomitant]
     Active Substance: FOLIC ACID
  9. OMEPRAZOLE [Concomitant]
     Active Substance: OMEPRAZOLE

REACTIONS (9)
  - Haemophagocytic lymphohistiocytosis [Unknown]
  - Chronic sinusitis [Unknown]
  - Enterovirus infection [Unknown]
  - Fungal infection [Unknown]
  - Klebsiella infection [Unknown]
  - Candida infection [Unknown]
  - Rhinovirus infection [Unknown]
  - Meningoencephalitis viral [Unknown]
  - Escherichia bacteraemia [Unknown]
